FAERS Safety Report 20297727 (Version 2)
Quarter: 2022Q1

REPORT INFORMATION
  Report Type: Report from Study
  Country: KR (occurrence: KR)
  Receive Date: 20220105
  Receipt Date: 20220311
  Transmission Date: 20220423
  Serious: Yes (Hospitalization, Other)
  Sender: FDA-Public Use
  Company Number: KR-CELLTRION INC.-2021KR018017

PATIENT

DRUGS (10)
  1. HERZUMA [Suspect]
     Active Substance: TRASTUZUMAB-PKRB
     Indication: HER2 positive breast cancer
     Dosage: UNK
     Route: 042
     Dates: start: 20210617, end: 20211125
  2. BARACLUDE [Concomitant]
     Active Substance: ENTECAVIR
     Indication: Hepatitis B
     Dosage: 0.5 MG, QD
     Route: 048
     Dates: start: 20190919
  3. FLORINEF ACETATE [Concomitant]
     Active Substance: FLUDROCORTISONE ACETATE
     Indication: Adrenal gland cancer metastatic
     Dosage: 1 MG, QD
     Route: 048
     Dates: start: 20210917
  4. LOPERAMIDE [Concomitant]
     Active Substance: LOPERAMIDE
     Indication: Prophylaxis against diarrhoea
     Dosage: 10 MG, PRN
     Route: 048
     Dates: start: 20210610
  5. PREDNISOLONE [Concomitant]
     Active Substance: PREDNISOLONE
     Indication: Prophylaxis
     Dosage: 5 MG, BID
     Route: 048
     Dates: start: 20210517
  6. PREDNISOLONE [Concomitant]
     Active Substance: PREDNISOLONE
     Indication: Headache
  7. CRESTOR [Concomitant]
     Active Substance: ROSUVASTATIN CALCIUM
     Indication: Left ventricular failure
     Dosage: 5 MG, QD
     Route: 048
     Dates: start: 20210531
  8. TORSEMIDE [Concomitant]
     Active Substance: TORSEMIDE
     Indication: Left ventricular failure
     Dosage: 2.5 MG, QD
     Route: 048
     Dates: start: 20210531
  9. BONARING-A [Concomitant]
     Indication: Metastases to central nervous system
     Dosage: 50 MG, BID
     Route: 048
     Dates: start: 20210603
  10. GUJU SPIRODACTON [Concomitant]
     Indication: Left ventricular failure
     Dosage: 1 TAB, QD
     Route: 048
     Dates: start: 20210823

REACTIONS (2)
  - Hypercalcaemia [Recovered/Resolved]
  - COVID-19 [Recovered/Resolved]

NARRATIVE: CASE EVENT DATE: 20211211
